FAERS Safety Report 6457023-0 (Version None)
Quarter: 2009Q4

REPORT INFORMATION
  Report Type: 
  Country: None (occurrence: None)
  Receive Date: 20091125
  Receipt Date: 20091116
  Transmission Date: 20100525
  Serious: Yes (Other)
  Sender: FDA-Public Use
  Company Number: US-PFIZER INC-2009282729

PATIENT
  Sex: Female
  Weight: 74.9 kg

DRUGS (13)
  1. AROMASIN [Suspect]
     Indication: BREAST CANCER
     Dosage: 25 MG, 1X/DAY
     Dates: start: 20090501
  2. LASIX [Concomitant]
  3. METOLAZONE [Concomitant]
  4. COZAAR [Concomitant]
     Dosage: UNK
  5. METOPROLOL [Concomitant]
     Dosage: UNK
  6. DETROL LA [Concomitant]
     Dosage: UNK
  7. LIPITOR [Concomitant]
     Dosage: UNK
  8. ACETYLSALICYLIC ACID [Concomitant]
     Dosage: UNK
  9. HYDROCHLOROTHIAZIDE [Suspect]
  10. LOTREL [Concomitant]
     Dosage: UNK
  11. METAMUCIL [Concomitant]
  12. METFORMIN [Concomitant]
  13. PRAVACHOL [Concomitant]

REACTIONS (10)
  - CARDIAC FAILURE CONGESTIVE [None]
  - CARDIOMEGALY [None]
  - CHRONIC OBSTRUCTIVE PULMONARY DISEASE [None]
  - CONSTIPATION [None]
  - DYSGEUSIA [None]
  - DYSPNOEA [None]
  - INSOMNIA [None]
  - OEDEMA PERIPHERAL [None]
  - PLEURAL FIBROSIS [None]
  - RASH ERYTHEMATOUS [None]
